FAERS Safety Report 16641076 (Version 2)
Quarter: 2019Q3

REPORT INFORMATION
  Report Type: Report from Study
  Country: IT (occurrence: IT)
  Receive Date: 20190729
  Receipt Date: 20190909
  Transmission Date: 20191004
  Serious: Yes (Other)
  Sender: FDA-Public Use
  Company Number: IT-ROCHE-2357346

PATIENT
  Age: 47 Year
  Sex: Female

DRUGS (1)
  1. OCRELIZUMAB. [Suspect]
     Active Substance: OCRELIZUMAB
     Indication: MULTIPLE SCLEROSIS
     Route: 042
     Dates: start: 20190206

REACTIONS (4)
  - Staphylococcal infection [Recovered/Resolved]
  - Rhinitis [Recovered/Resolved]
  - Injury [Recovered/Resolved]
  - Nasal crusting [Recovered/Resolved]

NARRATIVE: CASE EVENT DATE: 20190301
